FAERS Safety Report 7711711-4 (Version None)
Quarter: 2011Q3

REPORT INFORMATION
  Report Type: 
  Country: None (occurrence: None)
  Receive Date: 20110826
  Receipt Date: 20110819
  Transmission Date: 20111222
  Serious: Yes (Hospitalization, Other)
  Sender: FDA-Public Use
  Company Number: GB-JNJFOC-20110603688

PATIENT
  Sex: Female
  Weight: 63 kg

DRUGS (4)
  1. CARBIMAZOLE [Concomitant]
     Indication: HYPERTHYROIDISM
     Route: 065
  2. SIMAVASTATIN [Concomitant]
     Indication: CEREBROVASCULAR ACCIDENT PROPHYLAXIS
     Route: 065
     Dates: start: 20110101
  3. ASPIRIN [Concomitant]
     Indication: CEREBROVASCULAR ACCIDENT PROPHYLAXIS
     Route: 065
  4. RISPERDAL CONSTA [Suspect]
     Indication: PRODUCT USED FOR UNKNOWN INDICATION
     Route: 030
     Dates: start: 20100801, end: 20110321

REACTIONS (7)
  - TREATMENT NONCOMPLIANCE [None]
  - SCHIZOPHRENIA [None]
  - VOMITING [None]
  - SEDATION [None]
  - DEPRESSED MOOD [None]
  - ABNORMAL BEHAVIOUR [None]
  - DIZZINESS [None]
